FAERS Safety Report 5485763-9 (Version None)
Quarter: 2007Q4

REPORT INFORMATION
  Report Type: 
  Country: None (occurrence: None)
  Receive Date: 20071015
  Receipt Date: 20071004
  Transmission Date: 20080405
  Serious: Yes (Hospitalization, Other)
  Sender: FDA-Public Use
  Company Number: B0490965A

PATIENT
  Age: 44 Year
  Sex: Male
  Weight: 89 kg

DRUGS (3)
  1. NIQUITIN [Suspect]
     Indication: SMOKING CESSATION THERAPY
     Route: 062
     Dates: start: 20070717
  2. DICLOFENAC SODIUM [Concomitant]
     Indication: BACK PAIN
     Dosage: 50MG THREE TIMES PER DAY
     Route: 048
     Dates: start: 20050920, end: 20070914
  3. LANSOPRAZOLE [Concomitant]
     Indication: DYSPEPSIA
     Dosage: 15MG PER DAY
     Route: 048
     Dates: start: 20050920

REACTIONS (1)
  - GRAND MAL CONVULSION [None]
